FAERS Safety Report 4823929-9 (Version None)
Quarter: 2005Q4

REPORT INFORMATION
  Report Type: 
  Country: None (occurrence: None)
  Receive Date: 20051109
  Receipt Date: 20051028
  Transmission Date: 20060501
  Serious: Yes (Other)
  Sender: FDA-Public Use
  Company Number: DE-SANOFI-SYNTHELABO-A04200500927

PATIENT
  Age: 85 Year
  Sex: Male

DRUGS (2)
  1. PLAVIX [Suspect]
     Indication: STENT PLACEMENT
     Route: 048
     Dates: start: 20051001
  2. ASPIRIN [Concomitant]
     Indication: STENT PLACEMENT
     Dosage: UNK
     Route: 048
     Dates: start: 20051001

REACTIONS (2)
  - APHASIA [None]
  - CONFUSIONAL STATE [None]
